FAERS Safety Report 4407159-0 (Version None)
Quarter: 2004Q3

REPORT INFORMATION
  Report Type: 
  Country: None (occurrence: None)
  Receive Date: 20040721
  Receipt Date: 20040707
  Transmission Date: 20050211
  Serious: Yes (Other)
  Sender: FDA-Public Use
  Company Number: USA040669944

PATIENT
  Age: 75 Year
  Sex: Female
  Weight: 106 kg

DRUGS (1)
  1. FORTEO [Suspect]
     Indication: OSTEOPOROSIS
     Dosage: 640 UG
     Dates: start: 20040610, end: 20040610

REACTIONS (5)
  - FEELING ABNORMAL [None]
  - MEDICAL DEVICE COMPLICATION [None]
  - MEDICATION ERROR [None]
  - OEDEMA PERIPHERAL [None]
  - OVERDOSE [None]
